FAERS Safety Report 20946632 (Version 2)
Quarter: 2022Q2

REPORT INFORMATION
  Report Type: Spontaneous
  Country: BR (occurrence: BR)
  Receive Date: 20220610
  Receipt Date: 20220624
  Transmission Date: 20220721
  Serious: Yes (Life-Threatening, Hospitalization, Other)
  Sender: FDA-Public Use
  Company Number: BR-AMGEN-BRASP2022095027

PATIENT
  Age: 72 Year
  Sex: Female
  Weight: 48.5 kg

DRUGS (8)
  1. PEGFILGRASTIM [Suspect]
     Active Substance: PEGFILGRASTIM
     Indication: Breast cancer
     Dosage: 6 MILLIGRAM
     Route: 065
  2. PEGFILGRASTIM [Suspect]
     Active Substance: PEGFILGRASTIM
     Dosage: 6 MILLIGRAM
     Route: 065
  3. DOXORUBICIN [Concomitant]
     Active Substance: DOXORUBICIN
     Indication: Breast cancer
     Dosage: UNK
     Route: 065
  4. CYCLOPHOSPHAMIDE [Concomitant]
     Active Substance: CYCLOPHOSPHAMIDE
     Indication: Breast cancer
     Dosage: UNK
     Route: 065
  5. PACLITAXEL [Concomitant]
     Active Substance: PACLITAXEL
     Indication: Breast cancer
     Dosage: UNK
     Route: 065
  6. CARBOPLATIN [Concomitant]
     Active Substance: CARBOPLATIN
     Indication: Breast cancer
     Dosage: UNK
     Route: 065
  7. RAMIPRIL [Concomitant]
     Active Substance: RAMIPRIL
     Dosage: UNK
     Route: 065
  8. BROMAZEPAM [Concomitant]
     Active Substance: BROMAZEPAM
     Dosage: UNK
     Route: 065

REACTIONS (1)
  - Febrile neutropenia [Recovered/Resolved]

NARRATIVE: CASE EVENT DATE: 20220512
